FAERS Safety Report 4922868-2 (Version None)
Quarter: 2006Q1

REPORT INFORMATION
  Report Type: 
  Country: None (occurrence: None)
  Receive Date: 20060221
  Receipt Date: 20060207
  Transmission Date: 20060701
  Serious: No
  Sender: FDA-Public Use
  Company Number: 02100-JPN-06-0034

PATIENT

DRUGS (1)
  1. CILOSTAZOL [Suspect]
     Route: 048

REACTIONS (1)
  - NEUTROPENIA [None]
